FAERS Safety Report 6623882-1 (Version None)
Quarter: 2010Q1

REPORT INFORMATION
  Report Type: 
  Country: None (occurrence: None)
  Receive Date: 20100310
  Receipt Date: 20100224
  Transmission Date: 20100710
  Serious: Yes (Other)
  Sender: FDA-Public Use
  Company Number: PHHY2010FR04160

PATIENT
  Sex: Male
  Weight: 83 kg

DRUGS (3)
  1. RASILEZ [Suspect]
     Indication: HYPERTENSION
     Dosage: 150 MG, QD
     Route: 048
     Dates: start: 20091207, end: 20091215
  2. VITABACT [Concomitant]
     Indication: CONJUNCTIVITIS INFECTIVE
     Dosage: 4 DF, PER DAY
     Dates: start: 20091207, end: 20091215
  3. CHIBROXINE [Concomitant]
     Indication: CONJUNCTIVITIS INFECTIVE

REACTIONS (6)
  - GLYCOSYLATED HAEMOGLOBIN INCREASED [None]
  - HYPERTRIGLYCERIDAEMIA [None]
  - OEDEMA PERIPHERAL [None]
  - PAIN IN EXTREMITY [None]
  - RASH [None]
  - SKIN EXFOLIATION [None]
